FAERS Safety Report 18340082 (Version 2)
Quarter: 2020Q4

REPORT INFORMATION
  Report Type: Spontaneous
  Country: AU (occurrence: AU)
  Receive Date: 20201002
  Receipt Date: 20201014
  Transmission Date: 20210113
  Serious: Yes (Hospitalization)
  Sender: FDA-Public Use
  Company Number: AU-JNJFOC-20200951609

PATIENT
  Age: 57 Year
  Sex: Female

DRUGS (2)
  1. XARELTO [Suspect]
     Active Substance: RIVAROXABAN
     Indication: PULMONARY THROMBOSIS
     Dosage: 20 MG
     Route: 048
     Dates: start: 20161011, end: 20191222
  2. XARELTO [Suspect]
     Active Substance: RIVAROXABAN
     Indication: THROMBOSIS
     Route: 048
     Dates: start: 20191222

REACTIONS (2)
  - Product use complaint [Unknown]
  - Colonoscopy [Unknown]

NARRATIVE: CASE EVENT DATE: 2019
